FAERS Safety Report 6098311-X (Version None)
Quarter: 2009Q1

REPORT INFORMATION
  Report Type: 
  Country: None (occurrence: None)
  Receive Date: 20090302
  Receipt Date: 20090217
  Transmission Date: 20090719
  Serious: Yes (Hospitalization, Other)
  Sender: FDA-Public Use
  Company Number: US-PFIZER INC-2009171831

PATIENT

DRUGS (1)
  1. CELEBREX [Suspect]
     Dates: start: 20090101

REACTIONS (2)
  - HAEMOGLOBIN DECREASED [None]
  - SYNCOPE [None]
